FAERS Safety Report 8021602-X (Version None)
Quarter: 2012Q1

REPORT INFORMATION
  Report Type: 
  Country: None (occurrence: None)
  Receive Date: 20120104
  Receipt Date: 20120104
  Transmission Date: 20120608
  Serious: Yes (Other)
  Sender: FDA-Public Use
  Company Number: None

PATIENT
  Sex: Male
  Weight: 75 kg

DRUGS (2)
  1. ELDEPRYL [Concomitant]
  2. SELEGILINE [Suspect]
     Indication: PARKINSON'S DISEASE
     Dosage: 5 MG
     Route: 048
     Dates: start: 20040802, end: 20110413

REACTIONS (5)
  - ATRIAL FLUTTER [None]
  - GAIT DISTURBANCE [None]
  - HEART RATE INCREASED [None]
  - SYNCOPE [None]
  - PULSE ABNORMAL [None]
